FAERS Safety Report 8593614-9 (Version None)
Quarter: 2012Q3

REPORT INFORMATION
  Report Type: 
  Country: None (occurrence: None)
  Receive Date: 20120814
  Receipt Date: 20120807
  Transmission Date: 20120928
  Serious: Yes (Hospitalization)
  Sender: FDA-Public Use
  Company Number: DE-ROCHE-1053007

PATIENT
  Age: 38 Year
  Sex: Male
  Weight: 142 kg

DRUGS (4)
  1. ACTEMRA [Suspect]
     Route: 042
     Dates: start: 20120111
  2. LEFLUNOMIDE [Concomitant]
     Indication: RHEUMATOID ARTHRITIS
  3. ACTEMRA [Suspect]
     Route: 042
     Dates: start: 20120227
  4. ACTEMRA [Suspect]
     Indication: RHEUMATOID ARTHRITIS
     Route: 042
     Dates: start: 20111214, end: 20120326

REACTIONS (2)
  - CARDIAC FAILURE [None]
  - PNEUMONIA [None]
